FAERS Safety Report 4519444-2 (Version None)
Quarter: 2004Q4

REPORT INFORMATION
  Report Type: 
  Country: None (occurrence: None)
  Receive Date: 20041202
  Receipt Date: 20041119
  Transmission Date: 20050328
  Serious: Yes (Hospitalization)
  Sender: FDA-Public Use
  Company Number: 2004235074FR

PATIENT
  Age: 81 Year
  Sex: Male

DRUGS (13)
  1. SPIRONOLACTONE AND HYDROCHLOROTHIAZIDE [Suspect]
     Indication: ILL-DEFINED DISORDER
     Dosage: 50 MG/20 MG, ORAL
     Route: 048
     Dates: end: 20040728
  2. DELTASONE [Suspect]
     Indication: ILL-DEFINED DISORDER
     Dosage: 20 MILLIGRAM (20 MG); ORAL
     Route: 048
  3. ESOMEPRAZOLE (ESOMEPRAZOLE) [Suspect]
     Indication: ILL-DEFINED DISORDER
     Dosage: 40 MG (40 MG, DAILY); ORAL
     Route: 048
     Dates: end: 20040812
  4. DIETHYLSTILBESTROL [Suspect]
     Indication: ILL-DEFINED DISORDER
     Dosage: 1 DF (TID); ORAL
     Route: 048
     Dates: start: 20040704
  5. CLOPIDOGREL (CLOPIDOGREL) [Suspect]
     Indication: ILL-DEFINED DISORDER
     Dosage: 1 DF (DAILY); ORAL
     Route: 048
     Dates: start: 20040515, end: 20040801
  6. CYPROHEPTADINE HCL [Suspect]
     Indication: ILL-DEFINED DISORDER
     Dosage: 1 DF (BID); ORAL
     Route: 048
     Dates: start: 20040729, end: 20040812
  7. ...... [Concomitant]
  8. ......... [Concomitant]
  9. .......... [Concomitant]
  10. ......... [Concomitant]
  11. PARACETAMOL [Concomitant]
  12. ORNITHINE OXOGLURATE [Concomitant]
  13. .............. [Concomitant]

REACTIONS (6)
  - ANAEMIA [None]
  - CHOLELITHIASIS [None]
  - LEUKOPENIA [None]
  - ORAL CANDIDIASIS [None]
  - THROMBOCYTOPENIC PURPURA [None]
  - WEIGHT DECREASED [None]
